FAERS Safety Report 5458000-9 (Version None)
Quarter: 2007Q3

REPORT INFORMATION
  Report Type: 
  Country: None (occurrence: None)
  Receive Date: 20070917
  Receipt Date: 20070831
  Transmission Date: 20080115
  Serious: Yes (Hospitalization)
  Sender: FDA-Public Use
  Company Number: S07-ESP-03797-01

PATIENT
  Age: 75 Year
  Sex: Female

DRUGS (6)
  1. ESERTIA (ESCITALOPRAM) [Suspect]
     Indication: DEPRESSION
     Dosage: 10 MG BID PO
     Route: 048
     Dates: start: 20001101
  2. RISPERIDONE [Suspect]
     Dosage: 2 MG QD PO
     Route: 048
     Dates: start: 20060701
  3. TEGRETOL [Suspect]
     Indication: PERSONALITY DISORDER
     Dosage: 200 MG QD PO
     Route: 048
     Dates: start: 20040601, end: 20070626
  4. DEPRAX (TRAZODONE HYDROCHLORIDE) [Suspect]
     Indication: DEPRESSION
     Dosage: 100 MG QD PO
     Route: 048
     Dates: start: 20070501
  5. DUPHALAC [Concomitant]
  6. COAPROVEL [Concomitant]

REACTIONS (4)
  - AGITATION [None]
  - DRUG INTERACTION [None]
  - INAPPROPRIATE ANTIDIURETIC HORMONE SECRETION [None]
  - RESTLESSNESS [None]
